FAERS Safety Report 10745086 (Version 2)
Quarter: 2015Q2

REPORT INFORMATION
  Report Type: Spontaneous
  Country: US (occurrence: None)
  Receive Date: 20150120
  Receipt Date: 20150420
  Transmission Date: 20150821
  Serious: No
  Sender: FDA-Public Use
  Company Number: AEGR000897

PATIENT
  Age: 64 Year
  Sex: Female
  Weight: 77.1 kg

DRUGS (1)
  1. JUXTAPID [Suspect]
     Active Substance: LOMITAPIDE MESYLATE
     Indication: TYPE IIA HYPERLIPIDAEMIA
     Route: 048
     Dates: start: 20141107, end: 20150111

REACTIONS (15)
  - Skin lesion [None]
  - Anorectal disorder [None]
  - Musculoskeletal pain [None]
  - Somnolence [None]
  - Pain [None]
  - Low density lipoprotein increased [None]
  - Hypoaesthesia [None]
  - Headache [None]
  - Dizziness [None]
  - Laboratory test abnormal [None]
  - Arthralgia [None]
  - Pain in extremity [None]
  - Therapy cessation [None]
  - Chest pain [None]
  - Weight decreased [None]

NARRATIVE: CASE EVENT DATE: 20141107
